FAERS Safety Report 8965921 (Version 1)
Quarter: 2012Q4

REPORT INFORMATION
  Report Type: 
  Country: US (occurrence: US)
  Receive Date: 20121217
  Receipt Date: 20121217
  Transmission Date: 20130627
  Serious: No
  Sender: FDA-Public Use
  Company Number: US-ABBOTT-12P-163-0942872-00

PATIENT
  Sex: Female

DRUGS (10)
  1. TRILIPIX [Suspect]
     Indication: PRODUCT USED FOR UNKNOWN INDICATION
  2. CRESTOR [Suspect]
     Indication: PRODUCT USED FOR UNKNOWN INDICATION
  3. BABY ASPIRIN [Concomitant]
     Indication: PRODUCT USED FOR UNKNOWN INDICATION
     Dosage: Morning
  4. FAMOTIDINE [Concomitant]
     Indication: PRODUCT USED FOR UNKNOWN INDICATION
     Dosage: Morning and Night
  5. FISH OIL [Concomitant]
     Indication: PRODUCT USED FOR UNKNOWN INDICATION
     Dosage: Morning and Night
  6. GABAPENTIN [Concomitant]
     Indication: PRODUCT USED FOR UNKNOWN INDICATION
     Dosage: Morning, Noon and Night
  7. ISOSORBIDE [Concomitant]
     Indication: PRODUCT USED FOR UNKNOWN INDICATION
     Dosage: Morning
  8. METFORMIN [Concomitant]
     Indication: PRODUCT USED FOR UNKNOWN INDICATION
     Dosage: Morning and Night
  9. METOPROLOL [Concomitant]
     Indication: PRODUCT USED FOR UNKNOWN INDICATION
     Dosage: Morning and Night
  10. ZETIA [Concomitant]
     Indication: PRODUCT USED FOR UNKNOWN INDICATION
     Dosage: Night

REACTIONS (2)
  - Food allergy [Unknown]
  - Condition aggravated [None]
